FAERS Safety Report 4935542-3 (Version None)
Quarter: 2006Q1

REPORT INFORMATION
  Report Type: 
  Country: None (occurrence: None)
  Receive Date: 20060307
  Receipt Date: 20060223
  Transmission Date: 20060701
  Serious: Yes (Hospitalization)
  Sender: FDA-Public Use
  Company Number: B0413763A

PATIENT
  Age: 78 Year
  Sex: Female

DRUGS (5)
  1. DEROXAT [Suspect]
     Route: 048
     Dates: start: 19970115
  2. MODOPAR [Suspect]
     Indication: PARKINSON'S DISEASE
     Route: 048
     Dates: end: 20060118
  3. TRIVASTAL [Suspect]
     Indication: PARKINSON'S DISEASE
     Route: 048
     Dates: end: 20060118
  4. LEXOMIL [Concomitant]
     Route: 048
     Dates: start: 20060101, end: 20060101
  5. UNKNOWN LAXATIVE [Concomitant]
     Indication: IRRITABLE BOWEL SYNDROME
     Dates: end: 20060101

REACTIONS (5)
  - COLITIS [None]
  - DIARRHOEA [None]
  - HYPOKALAEMIA [None]
  - SUICIDE ATTEMPT [None]
  - WEIGHT DECREASED [None]
